FAERS Safety Report 6641546-5 (Version None)
Quarter: 2010Q1

REPORT INFORMATION
  Report Type: 
  Country: None (occurrence: None)
  Receive Date: 20100317
  Receipt Date: 20100317
  Transmission Date: 20100710
  Serious: Yes (Hospitalization, Other)
  Sender: FDA-Public Use
  Company Number: None

PATIENT
  Age: 66 Year
  Sex: Female
  Weight: 52.7 kg

DRUGS (9)
  1. TACROLIMUS [Suspect]
     Indication: PROPHYLAXIS AGAINST TRANSPLANT REJECTION
     Dosage: 2 MG Q 12? SC
     Route: 058
     Dates: start: 20100106, end: 20100108
  2. ASPIRIN [Concomitant]
  3. AZATHIOPRINE [Concomitant]
  4. CEFEPIME [Concomitant]
  5. METHYLPREDNISOLONE [Concomitant]
  6. METRONIDAZOLE [Concomitant]
  7. RANITIDINE [Concomitant]
  8. SENNA [Concomitant]
  9. SIMVASTATIN [Concomitant]

REACTIONS (2)
  - MENTAL STATUS CHANGES [None]
  - RENAL DISORDER [None]
